FAERS Safety Report 8129867-0 (Version None)
Quarter: 2011Q4

REPORT INFORMATION
  Report Type: 
  Country: None (occurrence: None)
  Receive Date: 20111227
  Receipt Date: 20111027
  Transmission Date: 20120403
  Serious: No
  Sender: FDA-Public Use
  Company Number: PHEH2011US01111

PATIENT
  Age: 30 Year
  Sex: Female
  Weight: 52.2 kg

DRUGS (2)
  1. GILENYA [Suspect]
     Indication: MULTIPLE SCLEROSIS
     Dosage: 1 DF, EVERYDAY, ORAL
     Route: 048
     Dates: start: 20110701
  2. SPRINTEC (ETHINYLESTRADIOL, NORGESTIMATE) TABLE [Concomitant]

REACTIONS (4)
  - ALOPECIA [None]
  - DIZZINESS [None]
  - FATIGUE [None]
  - HEADACHE [None]
